FAERS Safety Report 17419707 (Version 1)
Quarter: 2020Q1

REPORT INFORMATION
  Report Type: Spontaneous
  Country: US (occurrence: US)
  Receive Date: 20200214
  Receipt Date: 20200214
  Transmission Date: 20200409
  Serious: Yes (Life-Threatening)
  Sender: FDA-Public Use
  Company Number: None

PATIENT
  Age: 72 Year
  Sex: Male
  Weight: 80.1 kg

DRUGS (11)
  1. VISIPAQUE [Suspect]
     Active Substance: IODIXANOL
     Dosage: ?          OTHER FREQUENCY:ONCE FOR IMAGING;?
     Route: 042
     Dates: start: 20200213, end: 20200214
  2. FENTANYL IV 50MCG [Concomitant]
     Dates: start: 20200213
  3. HEPARIN IA 2500 UNITS [Concomitant]
     Dates: start: 20200213
  4. VERSED IV 1 MG [Concomitant]
     Dates: start: 20200213
  5. NITROGLYCERIN IA 200 MCG [Concomitant]
     Dates: start: 20200213
  6. ASPRIN 325MG PO [Concomitant]
     Dates: start: 20200213
  7. BENADRYL IV 50 MG [Concomitant]
     Dates: start: 20200213
  8. VERAPAMIL IA 2.5 MG [Concomitant]
     Dates: start: 20200213
  9. CLOPIDOGREL 300MG PO [Concomitant]
     Dates: start: 20200213
  10. 2% LIDOCAINE SUBQ 3 ML [Concomitant]
     Dates: start: 20200213
  11. HEPARIN IV 1000 UNITS [Concomitant]
     Dates: start: 20200213

REACTIONS (4)
  - Contrast media allergy [None]
  - Cardio-respiratory arrest [None]
  - Cardiac procedure complication [None]
  - Procedural hypotension [None]

NARRATIVE: CASE EVENT DATE: 20200213
